FAERS Safety Report 5551632-9 (Version None)
Quarter: 2007Q4

REPORT INFORMATION
  Report Type: 
  Country: None (occurrence: None)
  Receive Date: 20071129
  Receipt Date: 20061219
  Transmission Date: 20080405
  Serious: Yes (Hospitalization)
  Sender: FDA-Public Use
  Company Number: PHEH2006US12897

PATIENT
  Age: 47 Year
  Sex: Female
  Weight: 90.7 kg

DRUGS (7)
  1. LAMISIL [Suspect]
     Indication: NAIL TINEA
     Dosage: 250 MG, QD, ORAL
     Route: 048
  2. MONOPRIL [Suspect]
     Dosage: ORAL
     Route: 048
  3. ASPIRIN [Concomitant]
  4. SINGULAIR [Concomitant]
  5. CARDIZEM [Concomitant]
  6. TOPROL-XL [Concomitant]
  7. METFORMIN HCL [Concomitant]

REACTIONS (2)
  - ANAPHYLACTIC REACTION [None]
  - ANGIOEDEMA [None]
